FAERS Safety Report 4358954-8 (Version None)
Quarter: 2004Q2

REPORT INFORMATION
  Report Type: 
  Country: None (occurrence: None)
  Receive Date: 20040517
  Receipt Date: 20040307
  Transmission Date: 20050107
  Serious: Yes (Death, Hospitalization)
  Sender: FDA-Public Use
  Company Number: US-MERCK-0403USA00719

PATIENT
  Age: 77 Year
  Sex: Female

DRUGS (12)
  1. AMITRIPTYLINE HYDROCHLORIDE [Concomitant]
     Route: 065
  2. ASPIRIN [Concomitant]
     Route: 065
  3. LIPITOR [Suspect]
     Route: 065
     Dates: end: 20011101
  4. LIPITOR [Suspect]
     Route: 065
     Dates: start: 20011101, end: 20031112
  5. LIPITOR [Suspect]
     Route: 065
     Dates: start: 20031101, end: 20040106
  6. OS-CAL [Concomitant]
     Route: 065
  7. ZETIA [Suspect]
     Indication: LOW DENSITY LIPOPROTEIN INCREASED
     Route: 048
     Dates: start: 20030902, end: 20040106
  8. SYNTHROID [Concomitant]
     Route: 065
  9. PRINIVIL [Concomitant]
     Route: 048
  10. TOPROL-XL [Concomitant]
     Route: 065
  11. NITROFUR MAC [Concomitant]
     Route: 065
  12. DITROPAN [Concomitant]
     Route: 065

REACTIONS (3)
  - HEPATIC FAILURE [None]
  - HEPATIC NECROSIS [None]
  - LOW DENSITY LIPOPROTEIN INCREASED [None]
